FAERS Safety Report 20743589 (Version 2)
Quarter: 2022Q2

REPORT INFORMATION
  Report Type: Spontaneous
  Country: IT (occurrence: IT)
  Receive Date: 20220425
  Receipt Date: 20220509
  Transmission Date: 20220721
  Serious: Yes (Other)
  Sender: FDA-Public Use
  Company Number: IT-MINISAL02-860088

PATIENT
  Age: 83 Year
  Sex: Male
  Weight: 75 kg

DRUGS (2)
  1. ERTAPENEM [Interacting]
     Active Substance: ERTAPENEM
     Indication: Infection
     Dosage: 1 GRAM, ONCE A DAY
     Route: 041
     Dates: start: 20220326, end: 20220328
  2. VALPROATE SODIUM [Interacting]
     Active Substance: VALPROATE SODIUM
     Indication: Epilepsy
     Dosage: 500 MILLIGRAM, ONCE A DAY
     Route: 048

REACTIONS (2)
  - Epilepsy [Recovered/Resolved]
  - Drug interaction [Recovered/Resolved]

NARRATIVE: CASE EVENT DATE: 20220328
